FAERS Safety Report 11380169 (Version 2)
Quarter: 2015Q4

REPORT INFORMATION
  Report Type: Spontaneous
  Country: US (occurrence: US)
  Receive Date: 20150814
  Receipt Date: 20151019
  Transmission Date: 20160304
  Serious: Yes (Hospitalization)
  Sender: FDA-Public Use
  Company Number: US-BAYER-2015-399909

PATIENT
  Age: 29 Year
  Sex: Female
  Weight: 117.91 kg

DRUGS (6)
  1. FLAGYL [Concomitant]
     Active Substance: METRONIDAZOLE\METRONIDAZOLE HYDROCHLORIDE
     Dosage: 500 MG, UNK
  2. NAPROXEN SODIUM. [Concomitant]
     Active Substance: NAPROXEN SODIUM
  3. MIRENA [Suspect]
     Active Substance: LEVONORGESTREL
     Indication: CONTRACEPTION
     Dosage: 20 MCG/24HR, CONT
     Route: 015
     Dates: start: 20090520, end: 20140616
  4. TYLENOL PM [Concomitant]
     Active Substance: ACETAMINOPHEN\DIPHENHYDRAMINE
  5. IMPLANON [Concomitant]
     Active Substance: ETONOGESTREL
     Dosage: UNK
     Dates: start: 20090903, end: 20120920
  6. ALBUTEROL. [Concomitant]
     Active Substance: ALBUTEROL

REACTIONS (7)
  - Uterine perforation [None]
  - Injury [None]
  - Abdominal pain upper [None]
  - Device issue [None]
  - Migraine [None]
  - Dyspepsia [None]
  - Intentional device misuse [None]

NARRATIVE: CASE EVENT DATE: 200906
